FAERS Safety Report 7827480-3 (Version None)
Quarter: 2011Q4

REPORT INFORMATION
  Report Type: 
  Country: None (occurrence: None)
  Receive Date: 20111020
  Receipt Date: 20111012
  Transmission Date: 20120403
  Serious: Yes (Hospitalization, Other)
  Sender: FDA-Public Use
  Company Number: JP-ROCHE-771546

PATIENT
  Sex: Female
  Weight: 75 kg

DRUGS (9)
  1. GASUISAN [Concomitant]
     Dosage: DOSAGE UNCERTAIN
     Route: 048
  2. COPEGUS [Suspect]
     Indication: HEPATITIS C
     Route: 048
     Dates: start: 20110207, end: 20110316
  3. PEGASYS [Suspect]
     Indication: HEPATITIS C
     Route: 048
     Dates: start: 20110207, end: 20110316
  4. PEGASYS [Suspect]
  5. CANDESARTAN CILEXETIL [Concomitant]
     Dosage: DOSAGE UNCERTAIN
     Route: 048
  6. ASPARA-CA [Concomitant]
     Dosage: DOSAGE UNCERTAIN
  7. ACTOS [Concomitant]
     Dosage: DOSAGE UNCERTAIN
     Route: 048
  8. DEPAS [Concomitant]
     Dosage: DOSAGE UNCERTAIN
     Route: 048
  9. BEZATOL SR [Concomitant]
     Dosage: DOSAGE UNCERTAIN
     Route: 048

REACTIONS (1)
  - MIXED DEAFNESS [None]
